FAERS Safety Report 11686084 (Version 2)
Quarter: 2015Q4

REPORT INFORMATION
  Report Type: Spontaneous
  Country: FR (occurrence: FR)
  Receive Date: 20151030
  Receipt Date: 20151224
  Transmission Date: 20160304
  Serious: Yes (Death, Life-Threatening, Hospitalization)
  Sender: FDA-Public Use
  Company Number: FR-PFIZER INC-2015352941

PATIENT
  Age: 69 Year
  Sex: Male

DRUGS (23)
  1. SOLU-MEDROL [Suspect]
     Active Substance: METHYLPREDNISOLONE SODIUM SUCCINATE
     Indication: HODGKIN^S DISEASE
     Dosage: 240 MG, CYCLIC
     Route: 042
     Dates: start: 20150424, end: 20150810
  2. PIASCLEDINE /01305801/ [Concomitant]
  3. POLARAMINE [Concomitant]
     Active Substance: DEXCHLORPHENIRAMINE MALEATE
     Indication: PREMEDICATION
  4. ZELITREX [Concomitant]
     Active Substance: VALACYCLOVIR HYDROCHLORIDE
  5. INEXIUM /01479302/ [Concomitant]
     Active Substance: ESOMEPRAZOLE MAGNESIUM
  6. AERIUS [Concomitant]
     Active Substance: DESLORATADINE
     Dosage: 5 MG, UNK
  7. STRESAM [Concomitant]
     Active Substance: ETIFOXINE
  8. ZOPHREN /00955301/ [Concomitant]
     Active Substance: ONDANSETRON
     Indication: ANTIEMETIC SUPPORTIVE CARE
  9. ENDOTELON [Concomitant]
     Active Substance: GRAPE SEED EXTRACT
     Dosage: 2 DF, DAILY
  10. VINBLASTINE [Suspect]
     Active Substance: VINBLASTINE
     Indication: HODGKIN^S DISEASE
     Dosage: 12 MG, CYCLIC
     Route: 042
     Dates: start: 20150424, end: 20150810
  11. DACARBAZINE. [Suspect]
     Active Substance: DACARBAZINE
     Indication: HODGKIN^S DISEASE
     Dosage: 750 MG, CYCLIC
     Route: 042
     Dates: start: 20150424, end: 20150810
  12. BACTRIM [Concomitant]
     Active Substance: SULFAMETHOXAZOLE\TRIMETHOPRIM
  13. LEDERFOLINE [Concomitant]
     Active Substance: LEUCOVORIN CALCIUM
  14. EPREX [Concomitant]
     Active Substance: ERYTHROPOIETIN
     Dosage: 30000 IU, WEEKLY
     Route: 058
  15. MICARDIS [Concomitant]
     Active Substance: TELMISARTAN
     Dosage: 80/12.5
  16. DEXAMETHASONE. [Concomitant]
     Active Substance: DEXAMETHASONE
     Indication: PREMEDICATION
  17. NORDAZ [Concomitant]
     Active Substance: NORDAZEPAM
     Dosage: 7.5 MG, UNK
  18. LAMALINE [Concomitant]
     Active Substance: ACETAMINOPHEN\CAFFEINE\OPIUM
  19. IXPRIM [Concomitant]
     Active Substance: ACETAMINOPHEN\TRAMADOL HYDROCHLORIDE
  20. DOXORUBICIN HCL [Suspect]
     Active Substance: DOXORUBICIN HYDROCHLORIDE
     Indication: HODGKIN^S DISEASE
     Dosage: 50 MG, CYCLIC
     Route: 042
     Dates: start: 20150424, end: 20150810
  21. BLEOMYCIN SULFATE [Suspect]
     Active Substance: BLEOMYCIN SULFATE
     Indication: HODGKIN^S DISEASE
     Dosage: UNK, CYCLIC
     Route: 042
     Dates: start: 20150424, end: 20150810
  22. PRIMPERAN [Concomitant]
     Active Substance: METOCLOPRAMIDE HYDROCHLORIDE
  23. XATRAL [Concomitant]
     Active Substance: ALFUZOSIN

REACTIONS (1)
  - Interstitial lung disease [Fatal]

NARRATIVE: CASE EVENT DATE: 20150923
